FAERS Safety Report 4941316-X (Version None)
Quarter: 2006Q1

REPORT INFORMATION
  Report Type: 
  Country: None (occurrence: None)
  Receive Date: 20060310
  Receipt Date: 20060303
  Transmission Date: 20060701
  Serious: Yes (Life-Threatening, Disabling)
  Sender: FDA-Public Use
  Company Number: A0596017A

PATIENT
  Age: 41 Year
  Sex: Female

DRUGS (4)
  1. AVANDIA [Suspect]
     Indication: DIABETES MELLITUS NON-INSULIN-DEPENDENT
     Dosage: 4 MG TWICE PER DAY ORAL
     Route: 048
     Dates: start: 20060206
  2. ATORVASTATIN CALCIUM [Concomitant]
  3. GLIMEPIRIDE [Concomitant]
  4. ASPIRIN [Concomitant]

REACTIONS (4)
  - BLOOD GLUCOSE DECREASED [None]
  - MALAISE [None]
  - NAUSEA [None]
  - SPEECH DISORDER [None]
